FAERS Safety Report 5269098-5 (Version None)
Quarter: 2007Q1

REPORT INFORMATION
  Report Type: 
  Country: None (occurrence: None)
  Receive Date: 20070319
  Receipt Date: 20070306
  Transmission Date: 20070707
  Serious: Yes (Other)
  Sender: FDA-Public Use
  Company Number: US-ROCHE-486184

PATIENT
  Age: 39 Year
  Sex: Female
  Weight: 85.7 kg

DRUGS (5)
  1. PEG-INTERFERON A-2A (RO 25-8310) [Suspect]
     Route: 058
     Dates: start: 20060324, end: 20060531
  2. RIBAVIRIN [Suspect]
     Route: 048
     Dates: start: 20060324, end: 20060531
  3. ALBUTEROL [Concomitant]
     Dates: start: 20060405, end: 20060519
  4. NEXIUM [Concomitant]
     Dates: start: 20050601
  5. WELLBUTRIN [Concomitant]
     Dates: start: 20060324, end: 20060519

REACTIONS (1)
  - MIGRAINE [None]
